FAERS Safety Report 14007570 (Version 1)
Quarter: 2017Q3

REPORT INFORMATION
  Report Type: Report from Study
  Country: None (occurrence: CZ)
  Receive Date: 20170925
  Receipt Date: 20170925
  Transmission Date: 20171128
  Serious: Yes (Hospitalization)
  Sender: FDA-Public Use
  Company Number: CZ-ABBVIE-17K-217-2022804-00

PATIENT
  Age: 53 Year
  Sex: Female
  Weight: 72 kg

DRUGS (1)
  1. HUMIRA [Suspect]
     Active Substance: ADALIMUMAB
     Indication: RHEUMATOID ARTHRITIS
     Route: 058
     Dates: start: 20160726

REACTIONS (19)
  - Abdominal abscess [Unknown]
  - Rhinitis [Unknown]
  - Chills [Unknown]
  - Gastrointestinal wall thickening [Unknown]
  - Decreased appetite [Unknown]
  - Dysuria [Unknown]
  - Blood urea increased [Unknown]
  - Colitis [Unknown]
  - Fatigue [Unknown]
  - Diarrhoea [Unknown]
  - Abdominal pain [Unknown]
  - Alanine aminotransferase increased [Unknown]
  - Pelvic abscess [Recovered/Resolved]
  - Purulent discharge [Unknown]
  - Aspartate aminotransferase increased [Unknown]
  - Diverticulitis [Recovered/Resolved]
  - Blood creatinine increased [Unknown]
  - Nausea [Unknown]
  - Rectal abscess [Unknown]

NARRATIVE: CASE EVENT DATE: 20170609
